FAERS Safety Report 17714093 (Version 5)
Quarter: 2020Q3

REPORT INFORMATION
  Report Type: Spontaneous
  Country: US (occurrence: US)
  Receive Date: 20200427
  Receipt Date: 20200811
  Transmission Date: 20201102
  Serious: Yes (Hospitalization)
  Sender: FDA-Public Use
  Company Number: US-LEXICON PHARMACEUTICALS, INC-20-1606-00318

PATIENT
  Age: 72 Year
  Sex: Male

DRUGS (2)
  1. XERMELO [Suspect]
     Active Substance: TELOTRISTAT ETHYL
     Indication: NEUROENDOCRINE TUMOUR
  2. XERMELO [Suspect]
     Active Substance: TELOTRISTAT ETHYL
     Indication: RECTAL CANCER
     Dates: start: 20181130

REACTIONS (6)
  - Hospitalisation [Unknown]
  - Product dose omission issue [Unknown]
  - Colon cancer stage IV [Unknown]
  - Dysphagia [Not Recovered/Not Resolved]
  - Diabetes mellitus [Unknown]
  - Off label use [Not Recovered/Not Resolved]
